FAERS Safety Report 13653914 (Version 1)
Quarter: 2017Q2

REPORT INFORMATION
  Report Type: Spontaneous
  Country: US (occurrence: US)
  Receive Date: 20170614
  Receipt Date: 20170614
  Transmission Date: 20170830
  Serious: No
  Sender: FDA-Public Use
  Company Number: US-MAYNE PHARMA-2016MYN000953

PATIENT
  Age: 52 Year
  Sex: Female
  Weight: 41.27 kg

DRUGS (2)
  1. DORYX [Suspect]
     Active Substance: DOXYCYCLINE HYCLATE
     Dosage: 200 MG, QD
     Route: 048
     Dates: start: 20161212, end: 201612
  2. DORYX [Suspect]
     Active Substance: DOXYCYCLINE HYCLATE
     Indication: NAIL INFECTION
     Dosage: 200 MG, QD
     Route: 048
     Dates: start: 20161207, end: 201612

REACTIONS (4)
  - Weight decreased [Recovering/Resolving]
  - Nausea [Recovering/Resolving]
  - Vomiting [Recovering/Resolving]
  - Diarrhoea [Recovering/Resolving]

NARRATIVE: CASE EVENT DATE: 201612
